FAERS Safety Report 7644784-8 (Version None)
Quarter: 2011Q3

REPORT INFORMATION
  Report Type: 
  Country: None (occurrence: None)
  Receive Date: 20110725
  Receipt Date: 20110708
  Transmission Date: 20111222
  Serious: Yes (Other)
  Sender: FDA-Public Use
  Company Number: AUR-APL-2011-04038

PATIENT
  Age: 69 Year
  Sex: Male

DRUGS (1)
  1. RAMIPRIL [Suspect]
     Indication: HYPERTENSION
     Dosage: (5 MG,1 D)

REACTIONS (10)
  - NEUTROPENIA [None]
  - WHITE BLOOD CELL COUNT INCREASED [None]
  - HEPATOSPLENOMEGALY [None]
  - EOSINOPHILIA [None]
  - HEPATITIS [None]
  - MACULE [None]
  - FACE OEDEMA [None]
  - PYREXIA [None]
  - SKIN PLAQUE [None]
  - LYMPHADENOPATHY [None]
